FAERS Safety Report 8549755 (Version 2)
Quarter: 2012Q4

REPORT INFORMATION
  Report Type: 
  Country: US (occurrence: US)
  Receive Date: 20120507
  Receipt Date: 20120920
  Transmission Date: 20130627
  Serious: Yes (Other)
  Sender: FDA-Public Use
  Company Number: US-ASTRAZENECA-2012SE28034

PATIENT
  Age: 85 Year
  Sex: Female
  Weight: 72.1 kg

DRUGS (5)
  1. SYMBICORT PMDI [Suspect]
     Indication: CHRONIC OBSTRUCTIVE PULMONARY DISEASE
     Dosage: 160/4.5 MCG, ONE PUFF IN AM AND ONE PUFF IN PM
     Route: 055
     Dates: start: 2009, end: 20120908
  2. SYMBICORT PMDI [Suspect]
     Indication: ASTHMA
     Dosage: 160/4.5 MCG, ONE PUFF IN AM AND ONE PUFF IN PM
     Route: 055
     Dates: start: 2009, end: 20120908
  3. PROAIR [Concomitant]
     Indication: ASTHMA
     Dosage: DAILY
     Route: 055
  4. BLOOD PRESSURE MEDICATION [Concomitant]
     Indication: HYPERTENSION
  5. MEDICATION FOR BONES [Concomitant]
     Indication: BONE DISORDER

REACTIONS (2)
  - Wrist fracture [Unknown]
  - Drug dose omission [Unknown]
